FAERS Safety Report 24409933 (Version 1)
Quarter: 2024Q4

REPORT INFORMATION
  Report Type: Report from Study
  Country: US (occurrence: US)
  Receive Date: 20241008
  Receipt Date: 20241008
  Transmission Date: 20250115
  Serious: Yes (Hospitalization)
  Sender: SANOFI AVENTIS
  Company Number: US-SA-SAC20240821000402

PATIENT
  Age: 46 Year
  Sex: Female

DRUGS (8)
  1. CAPLACIZUMAB-YHDP [Suspect]
     Active Substance: CAPLACIZUMAB-YHDP
     Indication: Thrombotic thrombocytopenic purpura
     Dosage: 11 MG, QD
     Route: 058
     Dates: start: 20240816
  2. CAPLACIZUMAB-YHDP [Suspect]
     Active Substance: CAPLACIZUMAB-YHDP
     Indication: Thrombotic thrombocytopenic purpura
     Dosage: 11 MG, QD
     Route: 058
     Dates: start: 20240816
  3. CAPLACIZUMAB-YHDP [Suspect]
     Active Substance: CAPLACIZUMAB-YHDP
     Indication: Thrombotic thrombocytopenic purpura
     Dosage: 11 MG, QD
     Route: 058
     Dates: start: 20240816
  4. CAPLACIZUMAB-YHDP [Suspect]
     Active Substance: CAPLACIZUMAB-YHDP
     Indication: Thrombotic thrombocytopenic purpura
     Dosage: 11 MG, QD
     Route: 058
     Dates: start: 20240816
  5. CAPLACIZUMAB-YHDP [Suspect]
     Active Substance: CAPLACIZUMAB-YHDP
     Dosage: UNK, QOD
  6. CAPLACIZUMAB-YHDP [Suspect]
     Active Substance: CAPLACIZUMAB-YHDP
     Dosage: UNK, QOD
  7. CAPLACIZUMAB-YHDP [Suspect]
     Active Substance: CAPLACIZUMAB-YHDP
     Dosage: UNK, QOD
  8. CAPLACIZUMAB-YHDP [Suspect]
     Active Substance: CAPLACIZUMAB-YHDP
     Dosage: UNK, QOD

REACTIONS (10)
  - Erythema [Unknown]
  - Vulvovaginal pruritus [Unknown]
  - Platelet count increased [Unknown]
  - White blood cell count increased [Unknown]
  - White blood cells urine positive [Unknown]
  - Blood urine present [Unknown]
  - Vaginal haemorrhage [Not Recovered/Not Resolved]
  - Injection site bruising [Unknown]
  - Muscle spasms [Unknown]
  - Contusion [Unknown]

NARRATIVE: CASE EVENT DATE: 20240916
